FAERS Safety Report 4563916-1 (Version None)
Quarter: 2005Q1

REPORT INFORMATION
  Report Type: 
  Country: None (occurrence: None)
  Receive Date: 20050121
  Receipt Date: 20050110
  Transmission Date: 20050727
  Serious: Yes (Hospitalization, Other)
  Sender: FDA-Public Use
  Company Number: 2004053295

PATIENT
  Age: 67 Year
  Sex: Female
  Weight: 76 kg

DRUGS (2)
  1. LIPITOR [Suspect]
     Indication: DYSLIPIDAEMIA
     Dosage: (10 MG), ORAL
     Route: 048
  2. DILANTIN [Suspect]
     Indication: ILL-DEFINED DISORDER
     Dosage: 400 MG (100 MG, 4 IN 1 D), ORAL
     Route: 048
     Dates: start: 20030713, end: 20030701

REACTIONS (2)
  - DRUG INTERACTION [None]
  - RHABDOMYOLYSIS [None]
